FAERS Safety Report 9490944 (Version 2)
Quarter: 2013Q3

REPORT INFORMATION
  Report Type: Spontaneous
  Country: US (occurrence: US)
  Receive Date: 20130830
  Receipt Date: 20130916
  Transmission Date: 20140515
  Serious: No
  Sender: FDA-Public Use
  Company Number: US-PFIZER INC-2013248707

PATIENT
  Sex: Female

DRUGS (6)
  1. GABAPENTIN [Suspect]
     Dosage: UNK
  2. MORPHINE SULFATE [Suspect]
     Dosage: UNK
  3. ROBAXIN [Suspect]
     Dosage: UNK
  4. DESIPRAMINE HYDROCHLORIDE [Suspect]
     Dosage: UNK
  5. DULOXETINE [Suspect]
     Dosage: UNK
  6. HYDROMORPHONE HYDROCHLORIDE [Suspect]
     Dosage: UNK

REACTIONS (1)
  - Drug hypersensitivity [Unknown]
